FAERS Safety Report 7324769-1 (Version None)
Quarter: 2011Q1

REPORT INFORMATION
  Report Type: 
  Country: None (occurrence: None)
  Receive Date: 20110301
  Receipt Date: 20110221
  Transmission Date: 20110831
  Serious: Yes (Other)
  Sender: FDA-Public Use
  Company Number: BR-PFIZER INC-2011041614

PATIENT
  Sex: Male

DRUGS (1)
  1. LIPITOR [Suspect]
     Dosage: 80 MG FREQUENCY UNKNOWN
     Route: 048
     Dates: start: 20030101

REACTIONS (4)
  - BONE DISORDER [None]
  - CHONDROPATHY [None]
  - INTERVERTEBRAL DISC PROTRUSION [None]
  - LIMB DEFORMITY [None]
